FAERS Safety Report 20823071 (Version 3)
Quarter: 2023Q1

REPORT INFORMATION
  Report Type: Spontaneous
  Country: JP (occurrence: JP)
  Receive Date: 20220512
  Receipt Date: 20230307
  Transmission Date: 20230418
  Serious: Yes (Hospitalization, Other)
  Sender: FDA-Public Use
  Company Number: JP-NBI-J202208321BIPI

PATIENT
  Age: 69 Year
  Sex: Male
  Weight: 61 kg

DRUGS (6)
  1. DABIGATRAN ETEXILATE MESYLATE [Suspect]
     Active Substance: DABIGATRAN ETEXILATE MESYLATE
     Indication: Atrial fibrillation
     Route: 048
     Dates: start: 20211124
  2. DABIGATRAN ETEXILATE MESYLATE [Suspect]
     Active Substance: DABIGATRAN ETEXILATE MESYLATE
     Route: 048
     Dates: start: 20220511
  3. HEPARIN SODIUM [Suspect]
     Active Substance: HEPARIN SODIUM
     Indication: Atrial fibrillation
     Route: 042
     Dates: start: 20220510, end: 20220511
  4. BEPRIDIL [Concomitant]
     Active Substance: BEPRIDIL
     Indication: Arrhythmia prophylaxis
     Route: 048
     Dates: start: 20220124, end: 20220509
  5. BISOPROLOL [Concomitant]
     Active Substance: BISOPROLOL
     Indication: Heart rate abnormal
     Route: 048
     Dates: start: 20220124, end: 20220509
  6. DILTIAZEM HYDROCHLORIDE [Concomitant]
     Active Substance: DILTIAZEM HYDROCHLORIDE
     Indication: Heart rate abnormal
     Route: 048
     Dates: start: 20220221, end: 20220509

REACTIONS (1)
  - Cardiac tamponade [Recovered/Resolved]

NARRATIVE: CASE EVENT DATE: 20220510
